FAERS Safety Report 10789314 (Version 1)
Quarter: 2015Q1

REPORT INFORMATION
  Report Type: Spontaneous
  Country: US (occurrence: US)
  Receive Date: 20150212
  Receipt Date: 20150212
  Transmission Date: 20150721
  Serious: No
  Sender: FDA-Public Use
  Company Number: US-GLAXOSMITHKLINE-A1089837A

PATIENT

DRUGS (12)
  1. ADVAIR DISKUS [Suspect]
     Active Substance: FLUTICASONE PROPIONATE\SALMETEROL XINAFOATE
     Indication: TRAUMATIC LUNG INJURY
     Dosage: 100/50
     Route: 055
     Dates: start: 20140917
  2. CLONAZEPAM. [Concomitant]
     Active Substance: CLONAZEPAM
  3. METHOTREXATE [Concomitant]
     Active Substance: METHOTREXATE
  4. FLUVOXAMINE [Concomitant]
     Active Substance: FLUVOXAMINE
  5. ASPIRIN. [Concomitant]
     Active Substance: ASPIRIN
  6. FOLIC ACID. [Concomitant]
     Active Substance: FOLIC ACID
  7. CELEBREX [Concomitant]
     Active Substance: CELECOXIB
  8. MIRTAZAPINE. [Concomitant]
     Active Substance: MIRTAZAPINE
  9. LEVOTHYROXINE [Concomitant]
     Active Substance: LEVOTHYROXINE
  10. VITAMIN D [Concomitant]
     Active Substance: CHOLECALCIFEROL
  11. PLAQUENIL [Concomitant]
     Active Substance: HYDROXYCHLOROQUINE SULFATE
  12. PRILOSEC [Concomitant]
     Active Substance: OMEPRAZOLE MAGNESIUM

REACTIONS (1)
  - Chest discomfort [Not Recovered/Not Resolved]

NARRATIVE: CASE EVENT DATE: 20140917
